FAERS Safety Report 5561866-5 (Version None)
Quarter: 2007Q4

REPORT INFORMATION
  Report Type: 
  Country: None (occurrence: None)
  Receive Date: 20071215
  Receipt Date: 20071005
  Transmission Date: 20080405
  Serious: No
  Sender: FDA-Public Use
  Company Number: US-AMGEN-US246677

PATIENT
  Age: 85 Year
  Sex: Male

DRUGS (3)
  1. ARANESP [Suspect]
     Indication: RENAL FAILURE CHRONIC
     Route: 065
     Dates: start: 20070901
  2. LASIX [Concomitant]
     Route: 065
  3. IRON [Concomitant]
     Route: 065

REACTIONS (4)
  - CONSTIPATION [None]
  - DRY MOUTH [None]
  - HAEMOGLOBIN DECREASED [None]
  - MYALGIA [None]
